FAERS Safety Report 19505363 (Version 1)
Quarter: 2021Q3

REPORT INFORMATION
  Report Type: Spontaneous
  Country: US (occurrence: US)
  Receive Date: 20210707
  Receipt Date: 20210707
  Transmission Date: 20211014
  Serious: No
  Sender: FDA-Public Use
  Company Number: None

PATIENT
  Age: 36 Year
  Sex: Female
  Weight: 76.95 kg

DRUGS (2)
  1. SERTRALINE HCL 100 [Suspect]
     Active Substance: SERTRALINE HYDROCHLORIDE
     Indication: GENERALISED ANXIETY DISORDER
     Dosage: ?          QUANTITY:1 TABLET(S);?
     Route: 048
  2. SERTRALINE HCL 50 [Suspect]
     Active Substance: SERTRALINE HYDROCHLORIDE
     Indication: GENERALISED ANXIETY DISORDER

REACTIONS (18)
  - Electric shock sensation [None]
  - Ageusia [None]
  - Sexual dysfunction [None]
  - Dysgeusia [None]
  - Apathy [None]
  - Withdrawal syndrome [None]
  - Decreased appetite [None]
  - Musculoskeletal stiffness [None]
  - Parosmia [None]
  - Hypophagia [None]
  - Muscle spasms [None]
  - Weight increased [None]
  - Disturbance in attention [None]
  - Mood altered [None]
  - Bone pain [None]
  - Alcoholism [None]
  - Feeling abnormal [None]
  - Dizziness postural [None]

NARRATIVE: CASE EVENT DATE: 20210701
